FAERS Safety Report 19111901 (Version 1)
Quarter: 2021Q2

REPORT INFORMATION
  Report Type: Spontaneous
  Country: US (occurrence: US)
  Receive Date: 20210408
  Receipt Date: 20210408
  Transmission Date: 20210717
  Serious: Yes (Hospitalization)
  Sender: FDA-Public Use
  Company Number: US-SYMOGEN - AB-202000031

PATIENT
  Sex: Male
  Weight: 15.51 kg

DRUGS (1)
  1. LEUKINE [Suspect]
     Active Substance: SARGRAMOSTIM
     Indication: PRODUCT USED FOR UNKNOWN INDICATION
     Dosage: 175 MCG SUBCUTANEOUS DAILY ON DAYS 1 ? 14
     Route: 058
     Dates: start: 20200819

REACTIONS (1)
  - Hospitalisation [Unknown]
